FAERS Safety Report 9804441 (Version 1)
Quarter: 2014Q1

REPORT INFORMATION
  Report Type: Report from Study
  Country: US (occurrence: US)
  Receive Date: 20140108
  Receipt Date: 20140108
  Transmission Date: 20141002
  Serious: Yes (Hospitalization)
  Sender: FDA-Public Use
  Company Number: US-ABBVIE-14P-163-1186346-00

PATIENT
  Age: 20 Year
  Sex: Male
  Weight: 69.92 kg

DRUGS (5)
  1. HUMIRA [Suspect]
     Indication: CROHN^S DISEASE
     Dosage: DAY ONE
     Route: 058
     Dates: start: 2007, end: 2007
  2. HUMIRA [Suspect]
     Dosage: DAY 15
     Route: 058
     Dates: start: 2007, end: 2007
  3. HUMIRA [Suspect]
     Dosage: DAY 29
     Route: 058
     Dates: start: 2007
  4. LIALDA [Concomitant]
     Indication: CROHN^S DISEASE
  5. MERCAPTOPURINE [Concomitant]
     Indication: CROHN^S DISEASE

REACTIONS (4)
  - Convulsion [Recovered/Resolved]
  - Abdominal pain [Not Recovered/Not Resolved]
  - Musculoskeletal stiffness [Not Recovered/Not Resolved]
  - Joint stiffness [Not Recovered/Not Resolved]
